FAERS Safety Report 9057944 (Version 1)
Quarter: 2013Q1

REPORT INFORMATION
  Report Type: Spontaneous
  Country: US (occurrence: None)
  Receive Date: 20130204
  Receipt Date: 20130204
  Transmission Date: 20140127
  Serious: Yes (Other)
  Sender: FDA-Public Use
  Company Number: None

PATIENT
  Age: 38 Year
  Sex: Female
  Weight: 99.79 kg

DRUGS (1)
  1. ESCITALOPRAM [Suspect]
     Indication: DEPRESSION
     Route: 048
     Dates: start: 20130201, end: 20130203

REACTIONS (8)
  - Product substitution issue [None]
  - Product quality issue [None]
  - Somnolence [None]
  - Tremor [None]
  - Migraine [None]
  - Disorientation [None]
  - Headache [None]
  - Vision blurred [None]
